FAERS Safety Report 9463579 (Version 1)
Quarter: 2013Q3

REPORT INFORMATION
  Report Type: Spontaneous
  Country: BR (occurrence: BR)
  Receive Date: 20130819
  Receipt Date: 20130819
  Transmission Date: 20140515
  Serious: Yes (Other)
  Sender: FDA-Public Use
  Company Number: BR-ACCORD-018938

PATIENT
  Age: 68 Year
  Sex: Female
  Weight: 70.5 kg

DRUGS (6)
  1. PACLITAXEL [Suspect]
     Indication: PRODUCT USED FOR UNKNOWN INDICATION
     Route: 042
     Dates: start: 20130708, end: 20130708
  2. DEXCHLORPHENIRAMINE [Concomitant]
     Route: 048
     Dates: start: 20130704, end: 20130704
  3. RANITIDINE [Concomitant]
     Route: 042
     Dates: start: 20130704, end: 20130704
  4. DOXORUBICIN [Concomitant]
     Dosage: DOXORRUBICIN 50MG
     Route: 042
     Dates: start: 20130314, end: 20130314
  5. CYCLOPHOSPHAMIDE [Concomitant]
     Dosage: CYCLOPHOSPHAMIDE 20MG/ML
     Route: 042
     Dates: start: 20130314, end: 20130314
  6. DEXAMETHASONE PHOSPHATE [Concomitant]
     Dosage: DEXAMETHASONE PHOPHATE  2.5ML
     Route: 042
     Dates: start: 20130418, end: 20130418

REACTIONS (3)
  - Loss of consciousness [Recovered/Resolved]
  - Hyperhidrosis [Recovered/Resolved]
  - Vomiting [Recovered/Resolved]
